FAERS Safety Report 9958051 (Version 1)
Quarter: 2014Q1

REPORT INFORMATION
  Report Type: Report from Study
  Country: US (occurrence: US)
  Receive Date: 20140304
  Receipt Date: 20140304
  Transmission Date: 20141002
  Serious: No
  Sender: FDA-Public Use
  Company Number: US-ABBVIE-13P-163-1094311-00

PATIENT
  Age: 75 Year
  Sex: Female

DRUGS (20)
  1. HUMIRA [Suspect]
     Indication: RHEUMATOID ARTHRITIS
     Route: 058
     Dates: start: 20121228
  2. LORTAB [Suspect]
     Indication: PAIN
     Route: 048
  3. VITAMIN D2 [Concomitant]
     Indication: BONE DISORDER
  4. BONIVA [Concomitant]
     Indication: OSTEOPOROSIS
  5. DONEPEZIL [Concomitant]
     Indication: PRODUCT USED FOR UNKNOWN INDICATION
  6. LEVOTHYROXINE [Concomitant]
     Indication: HYPOTHYROIDISM
  7. PRAVASTATIN [Concomitant]
     Indication: PRODUCT USED FOR UNKNOWN INDICATION
  8. RISPERIDONE [Concomitant]
     Indication: PRODUCT USED FOR UNKNOWN INDICATION
     Dosage: 0.25MG IN THE AM, 1MG IN THE PM
  9. GEMFIBROZIL [Concomitant]
     Indication: PRODUCT USED FOR UNKNOWN INDICATION
  10. GEMFIBROZIL [Concomitant]
     Indication: NUTRITIONAL SUPPLEMENTATION
  11. CERTA-VITE [Concomitant]
     Indication: NUTRITIONAL SUPPLEMENTATION
  12. FERROUS SULFATE [Concomitant]
     Indication: PRODUCT USED FOR UNKNOWN INDICATION
  13. LEFLUNOMIDE [Concomitant]
     Indication: PRODUCT USED FOR UNKNOWN INDICATION
  14. ESCITALOPRAM [Concomitant]
     Indication: PRODUCT USED FOR UNKNOWN INDICATION
  15. FUROSEMIDE [Concomitant]
     Indication: PRODUCT USED FOR UNKNOWN INDICATION
  16. HYDROCODONE [Concomitant]
     Indication: PAIN
     Dosage: 5/325MG
  17. PIOGLITAZONE HYDROCHLORIDE [Concomitant]
     Indication: PRODUCT USED FOR UNKNOWN INDICATION
  18. CARAFATE [Concomitant]
     Indication: GASTRIC DISORDER
     Dates: start: 20130308
  19. PRILOSEC [Concomitant]
     Indication: GASTRIC DISORDER
     Dates: start: 20130308
  20. XANAX [Concomitant]
     Indication: ANXIETY
     Dates: start: 20130313

REACTIONS (3)
  - Fall [Recovering/Resolving]
  - Wrist fracture [Recovering/Resolving]
  - Joint dislocation [Recovering/Resolving]
